FAERS Safety Report 7354519-4 (Version None)
Quarter: 2011Q1

REPORT INFORMATION
  Report Type: 
  Country: None (occurrence: None)
  Receive Date: 20110316
  Receipt Date: 20110106
  Transmission Date: 20110831
  Serious: Yes (Other)
  Sender: FDA-Public Use
  Company Number: US-BAYER-201034342NA

PATIENT
  Sex: Female
  Weight: 78 kg

DRUGS (8)
  1. NAPROSYN [Concomitant]
     Dosage: TAKEN AT TIME OF EVENT
  2. HYDROCODONE BITARTRATE [Concomitant]
     Dosage: TAKEN AT TIME OF EVENT
  3. NSAID'S [Concomitant]
     Indication: HEADACHE
  4. ANALGESICS [Concomitant]
     Indication: BACK PAIN
  5. YASMIN [Suspect]
     Indication: PRODUCT USED FOR UNKNOWN INDICATION
     Route: 048
     Dates: start: 20070701, end: 20080101
  6. ANALGESICS [Concomitant]
     Indication: HEADACHE
  7. NSAID'S [Concomitant]
     Indication: BACK PAIN
  8. OCELLA [Suspect]
     Indication: PRODUCT USED FOR UNKNOWN INDICATION
     Route: 048
     Dates: start: 20100601, end: 20100701

REACTIONS (5)
  - THROMBOPHLEBITIS [None]
  - PAIN IN EXTREMITY [None]
  - PAIN [None]
  - SENSATION OF HEAVINESS [None]
  - VENOUS INSUFFICIENCY [None]
